FAERS Safety Report 6026366-7 (Version None)
Quarter: 2009Q1

REPORT INFORMATION
  Report Type: 
  Country: None (occurrence: None)
  Receive Date: 20090102
  Receipt Date: 20081222
  Transmission Date: 20090719
  Serious: Yes (Hospitalization, Other)
  Sender: FDA-Public Use
  Company Number: PHHY2008IE19889

PATIENT
  Sex: Male

DRUGS (12)
  1. CLOZARIL [Suspect]
     Indication: SCHIZOPHRENIA
     Dosage: UNK
     Dates: start: 20070719, end: 20080819
  2. CLOZARIL [Suspect]
     Dosage: 400 MG/DAY
  3. CYMBALTA [Concomitant]
     Indication: DEPRESSION
     Dosage: UNK
     Dates: start: 20071106, end: 20080819
  4. CYMBALTA [Concomitant]
     Dosage: 60 MG DAILY
     Dates: start: 20080823
  5. PRIADEL [Concomitant]
     Dosage: 400 MG/DAY
     Route: 048
     Dates: start: 20071106, end: 20080819
  6. PRIADEL [Concomitant]
     Dosage: UNK
     Dates: start: 20080823
  7. PROTHIADEN [Concomitant]
     Dosage: 150 MG/DAY
     Dates: start: 20071106, end: 20080819
  8. PROTHIADEN [Concomitant]
     Dosage: UNK
     Dates: start: 20080823
  9. DIAZEPAM [Concomitant]
     Dosage: 2 MG/DAY
     Dates: start: 20071106, end: 20080819
  10. DIAZEPAM [Concomitant]
     Dosage: UNK
     Dates: start: 20080823
  11. ABILIFY [Concomitant]
     Dosage: UNK
     Dates: end: 20080819
  12. ABILIFY [Concomitant]
     Dosage: UNK
     Dates: start: 20080823

REACTIONS (6)
  - DEPRESSION [None]
  - HYPERHIDROSIS [None]
  - NIGHTMARE [None]
  - SELF-INJURIOUS IDEATION [None]
  - TREATMENT NONCOMPLIANCE [None]
  - TREMOR [None]
